FAERS Safety Report 24801625 (Version 1)
Quarter: 2025Q1

REPORT INFORMATION
  Report Type: Spontaneous
  Country: US (occurrence: US)
  Receive Date: 20250102
  Receipt Date: 20250102
  Transmission Date: 20250409
  Serious: No
  Sender: PFIZER
  Company Number: US-PFIZER INC-202400334642

PATIENT
  Age: 76 Year
  Sex: Female

DRUGS (1)
  1. TUKYSA [Suspect]
     Active Substance: TUCATINIB
     Dosage: TAKE TWO 150MG TABLETS BY MOUTH TWICE DAILY
     Route: 048

REACTIONS (1)
  - Neoplasm progression [Unknown]
